FAERS Safety Report 18609179 (Version 3)
Quarter: 2022Q1

REPORT INFORMATION
  Report Type: Spontaneous
  Country: US (occurrence: US)
  Receive Date: 20201214
  Receipt Date: 20220119
  Transmission Date: 20220424
  Serious: No
  Sender: FDA-Public Use
  Company Number: US-LUPIN PHARMACEUTICALS INC.-2020-09332

PATIENT
  Age: 60 Year
  Sex: Female
  Weight: 58.05 kg

DRUGS (1)
  1. ALBUTEROL SULFATE [Suspect]
     Active Substance: ALBUTEROL SULFATE
     Indication: Asthma
     Dosage: UNK
     Dates: start: 20201030

REACTIONS (4)
  - Device malfunction [Unknown]
  - Device breakage [Unknown]
  - Nervousness [Unknown]
  - Tremor [None]

NARRATIVE: CASE EVENT DATE: 20201106
